FAERS Safety Report 8588685-X (Version None)
Quarter: 2012Q3

REPORT INFORMATION
  Report Type: 
  Country: None (occurrence: None)
  Receive Date: 20120813
  Receipt Date: 20120809
  Transmission Date: 20120928
  Serious: Yes (Hospitalization, Other)
  Sender: FDA-Public Use
  Company Number: PHHY2012BR057037

PATIENT
  Sex: Female

DRUGS (2)
  1. FORMOTEROL FUMARATE [Suspect]
     Indication: RESPIRATION ABNORMAL
     Dosage: 2 DF, UNK
  2. SPRIT [Concomitant]
     Dosage: 2 DF, UNK

REACTIONS (9)
  - ASTHMA [None]
  - LUNG DISORDER [None]
  - PNEUMONIA [None]
  - INSOMNIA [None]
  - BRONCHITIS [None]
  - MALAISE [None]
  - FATIGUE [None]
  - DYSPNOEA [None]
  - INSPIRATORY CAPACITY DECREASED [None]
